FAERS Safety Report 4502783-9 (Version None)
Quarter: 2004Q4

REPORT INFORMATION
  Report Type: 
  Country: None (occurrence: None)
  Receive Date: 20041116
  Receipt Date: 20041116
  Transmission Date: 20050328
  Serious: Yes (Death)
  Sender: FDA-Public Use
  Company Number: None

PATIENT
  Age: 92 Year
  Sex: Female
  Weight: 63.5036 kg

DRUGS (4)
  1. AVELOX [Suspect]
     Indication: CLOSTRIDIAL INFECTION
  2. AVELOX [Suspect]
     Indication: PNEUMONIA
  3. AVELOX [Suspect]
     Indication: SEPSIS
  4. AVELOX [Suspect]
     Indication: URINARY TRACT INFECTION

REACTIONS (7)
  - DEMENTIA [None]
  - FLUID INTAKE REDUCED [None]
  - GENERAL PHYSICAL HEALTH DETERIORATION [None]
  - MARKEDLY REDUCED DIETARY INTAKE [None]
  - PAIN [None]
  - SEPSIS [None]
  - STEVENS-JOHNSON SYNDROME [None]
